FAERS Safety Report 19286384 (Version 2)
Quarter: 2021Q2

REPORT INFORMATION
  Report Type: Spontaneous
  Country: US (occurrence: US)
  Receive Date: 20210521
  Receipt Date: 20210521
  Transmission Date: 20210717
  Serious: No
  Sender: FDA-Public Use
  Company Number: US-PFIZER INC-2021465201

PATIENT
  Age: 61 Year
  Sex: Male

DRUGS (5)
  1. DEPO?ESTRADIOL [Suspect]
     Active Substance: ESTRADIOL CYPIONATE
     Dosage: UNK, WEEKLY (5 TO 7.5 MG SUBCU WEEKLY)
     Route: 058
  2. ALDACTONE [Suspect]
     Active Substance: SPIRONOLACTONE
     Dosage: UNK, DAILY (100 MG #180, ONE PO TO TWO PO DAILY)
     Route: 048
  3. ESTRING [Suspect]
     Active Substance: ESTRADIOL
     Dosage: UNK (7.5/WK)
  4. DEPO?ESTRADIOL [Suspect]
     Active Substance: ESTRADIOL CYPIONATE
     Dosage: 7.5 MG, WEEKLY
     Route: 030
  5. PROMETRIUM [Suspect]
     Active Substance: PROGESTERONE
     Dosage: 200 MG (EVERY NIGHT AT BEDTIME)
     Route: 048

REACTIONS (5)
  - Alopecia [Unknown]
  - Hot flush [Unknown]
  - Tinea infection [Unknown]
  - Angiopathy [Unknown]
  - Dermatosis [Unknown]
